FAERS Safety Report 7772818-9 (Version None)
Quarter: 2011Q3

REPORT INFORMATION
  Report Type: 
  Country: None (occurrence: None)
  Receive Date: 20110922
  Receipt Date: 20110113
  Transmission Date: 20111222
  Serious: Yes (Other)
  Sender: FDA-Public Use
  Company Number: US-ASTRAZENECA-2007UW20782

PATIENT
  Age: 35 Year
  Sex: Male
  Weight: 95.3 kg

DRUGS (17)
  1. SEROQUEL [Suspect]
     Route: 048
     Dates: start: 20031031, end: 20040412
  2. CLONAZEPAM [Concomitant]
     Dosage: 0.25-0.5 MG
     Route: 048
     Dates: start: 19970401
  3. SOMA [Concomitant]
     Dosage: 975-2100 MG
     Dates: start: 19970101
  4. SINGULAIR [Concomitant]
     Dates: start: 20040126
  5. SUCRALFATE [Concomitant]
     Dosage: 1 GM DISSOLVE 1 T IN 100 ML WATER AND TAKE Q 6 H
     Dates: start: 20031208
  6. SEROQUEL [Suspect]
     Route: 048
     Dates: start: 20031031, end: 20040412
  7. SEROQUEL [Suspect]
     Route: 048
     Dates: start: 20031031, end: 20040412
  8. ALBUTEROL [Concomitant]
     Dates: start: 20011217
  9. SEROQUEL [Suspect]
     Indication: ANXIETY
     Route: 048
     Dates: start: 20031030
  10. EFFEXOR XR [Concomitant]
     Dosage: 150-225 MG
     Dates: start: 20030103
  11. SEROQUEL [Suspect]
     Indication: DEPRESSION
     Route: 048
     Dates: start: 20031030
  12. CLONAZEPAM [Concomitant]
     Route: 048
     Dates: start: 20031030
  13. DEPAKOTE ER [Concomitant]
     Indication: MOOD ALTERED
     Dosage: 250-1000 MG
     Dates: start: 20030707
  14. SEROQUEL [Suspect]
     Indication: MENTAL DISORDER
     Route: 048
     Dates: start: 20031030
  15. DEPAKOTE ER [Concomitant]
     Route: 048
     Dates: start: 20031030
  16. EFFEXOR XR [Concomitant]
     Route: 048
     Dates: start: 20031211
  17. GEODON [Concomitant]
     Dosage: 20-40 MG DAILY
     Dates: start: 20040401, end: 20040601

REACTIONS (4)
  - DEPRESSION [None]
  - DIABETES MELLITUS [None]
  - SUICIDAL IDEATION [None]
  - BLOOD CHOLESTEROL INCREASED [None]
